FAERS Safety Report 14492958 (Version 1)
Quarter: 2018Q1

REPORT INFORMATION
  Report Type: Spontaneous
  Country: US (occurrence: US)
  Receive Date: 20180205
  Receipt Date: 20180205
  Transmission Date: 20180509
  Serious: Yes (Hospitalization, Other)
  Sender: FDA-Public Use
  Company Number: None

PATIENT
  Age: 87 Year
  Sex: Male

DRUGS (1)
  1. WARFARIN [Suspect]
     Active Substance: WARFARIN

REACTIONS (7)
  - Haematocrit decreased [None]
  - Nausea [None]
  - Haemoglobin decreased [None]
  - Therapy cessation [None]
  - Gastrointestinal haemorrhage [None]
  - Asthenia [None]
  - Melaena [None]
